FAERS Safety Report 13259831 (Version 5)
Quarter: 2017Q3

REPORT INFORMATION
  Report Type: Spontaneous
  Country: FR (occurrence: FR)
  Receive Date: 20170222
  Receipt Date: 20170714
  Transmission Date: 20171127
  Serious: Yes (Other)
  Sender: FDA-Public Use
  Company Number: FR-PFIZER INC-2017073905

PATIENT
  Age: 80 Year
  Sex: Male
  Weight: 93 kg

DRUGS (14)
  1. NEBILOX [Concomitant]
     Active Substance: NEBIVOLOL HYDROCHLORIDE
     Indication: HYPERTENSION
     Dosage: 0.5 DF (5), 1X/DAY
     Route: 048
  2. LYRICA [Suspect]
     Active Substance: PREGABALIN
     Indication: NEURALGIA
     Dosage: 50 MG, 2X/DAY (ONE CAPSULE IN THE MORNING AND ONE CAPSULE IN THE EVENING)
     Route: 048
     Dates: start: 20170210, end: 20170323
  3. LAROXYL [Concomitant]
     Active Substance: AMITRIPTYLINE
     Indication: ANXIETY
  4. LYSANXIA [Concomitant]
     Active Substance: PRAZEPAM
     Dosage: 5 GTT, 1X/DAY AT NIGHT
  5. ATACAND [Concomitant]
     Active Substance: CANDESARTAN CILEXETIL
     Indication: HYPERTENSION
     Dosage: 1 DF, 1X/DAY
     Route: 048
  6. PANTOPRAZOLE [Concomitant]
     Active Substance: PANTOPRAZOLE
     Indication: ABDOMINAL PAIN UPPER
     Dosage: 1 DF (40), 1X/DAY
     Route: 048
  7. IPERTEN [Concomitant]
     Active Substance: MANIDIPINE
     Indication: HYPERTENSION
     Dosage: 1 DF (10), 1X/DAY
     Route: 048
  8. LYRICA [Suspect]
     Active Substance: PREGABALIN
     Indication: BURNING SENSATION
  9. LYRICA [Suspect]
     Active Substance: PREGABALIN
     Indication: ANORECTAL DISORDER
  10. ZOCOR [Concomitant]
     Active Substance: SIMVASTATIN
     Indication: BLOOD CHOLESTEROL INCREASED
     Dosage: 1 DF (20), 1X/DAY
     Route: 048
  11. LAROXYL [Concomitant]
     Active Substance: AMITRIPTYLINE
     Indication: REITER^S SYNDROME
     Dosage: 5 GTT (40 MG/ML), 1X/DAY AT BEDTIME
     Route: 048
     Dates: start: 20170210, end: 20170323
  12. LYRICA [Suspect]
     Active Substance: PREGABALIN
     Indication: REITER^S SYNDROME
  13. LAROXYL [Concomitant]
     Active Substance: AMITRIPTYLINE
     Indication: ANORECTAL DISORDER
  14. KARDEGIC [Concomitant]
     Active Substance: ASPIRIN LYSINE
     Indication: ARTERIOSCLEROSIS
     Dosage: 1 DF (160), 1X/DAY
     Route: 048

REACTIONS (11)
  - Abdominal pain upper [Unknown]
  - Drug ineffective [Unknown]
  - Suicidal ideation [Unknown]
  - Balance disorder [Unknown]
  - Tremor [Unknown]
  - Urinary tract disorder [Not Recovered/Not Resolved]
  - Visual acuity reduced [Unknown]
  - Headache [Unknown]
  - Fatigue [Unknown]
  - Vision blurred [Unknown]
  - Palpitations [Unknown]
